APPROVED DRUG PRODUCT: NEVIRAPINE
Active Ingredient: NEVIRAPINE
Strength: 200MG
Dosage Form/Route: TABLET;ORAL
Application: A078864 | Product #001
Applicant: PHARMOBEDIENT CONSULTING LLC
Approved: May 22, 2012 | RLD: No | RS: No | Type: DISCN